FAERS Safety Report 13329428 (Version 1)
Quarter: 2017Q1

REPORT INFORMATION
  Report Type: Spontaneous
  Country: US (occurrence: US)
  Receive Date: 20170313
  Receipt Date: 20170313
  Transmission Date: 20170428
  Serious: Yes (Other)
  Sender: FDA-Public Use
  Company Number: US-SA-2017SA038915

PATIENT
  Age: 73 Year
  Sex: Female

DRUGS (10)
  1. ALIROCUMAB PREFILLED PEN [Concomitant]
     Active Substance: ALIROCUMAB
     Dates: start: 20161015
  2. ALPRAZOLAM. [Concomitant]
     Active Substance: ALPRAZOLAM
  3. PRALUENT [Suspect]
     Active Substance: ALIROCUMAB
     Route: 058
     Dates: start: 20161015
  4. ZETIA [Concomitant]
     Active Substance: EZETIMIBE
  5. BRILINTA [Concomitant]
     Active Substance: TICAGRELOR
  6. LISINOPRIL. [Concomitant]
     Active Substance: LISINOPRIL
  7. LEVOTHYROXINE. [Concomitant]
     Active Substance: LEVOTHYROXINE
  8. METOPROLOL TARTRATE. [Concomitant]
     Active Substance: METOPROLOL TARTRATE
  9. LISINOPRIL. [Concomitant]
     Active Substance: LISINOPRIL
  10. METHOCARBAMOL. [Concomitant]
     Active Substance: METHOCARBAMOL

REACTIONS (3)
  - Myocardial infarction [Not Recovered/Not Resolved]
  - Dyspnoea [Not Recovered/Not Resolved]
  - Hypertension [Not Recovered/Not Resolved]

NARRATIVE: CASE EVENT DATE: 20170214
